FAERS Safety Report 6575967-6 (Version None)
Quarter: 2010Q1

REPORT INFORMATION
  Report Type: 
  Country: None (occurrence: None)
  Receive Date: 20100209
  Receipt Date: 20100205
  Transmission Date: 20100710
  Serious: No
  Sender: FDA-Public Use
  Company Number: US-ROXANE LABORATORIES, INC.-2010-RO-00129RO

PATIENT
  Sex: Female

DRUGS (6)
  1. BUTORPHANOL TARTRATE [Suspect]
     Indication: MIGRAINE
     Route: 045
     Dates: start: 20090701, end: 20091101
  2. SOMA [Concomitant]
     Indication: NECK INJURY
  3. DEPAKOTE [Concomitant]
     Indication: PAIN
  4. DARVOCET [Concomitant]
     Indication: PAIN
  5. AMBIEN [Concomitant]
     Indication: SLEEP DISORDER
  6. TRAZODONE [Concomitant]

REACTIONS (4)
  - ALOPECIA [None]
  - DYSGEUSIA [None]
  - DYSPHAGIA [None]
  - THROAT TIGHTNESS [None]
